FAERS Safety Report 23295439 (Version 1)
Quarter: 2023Q4

REPORT INFORMATION
  Report Type: Spontaneous
  Country: US (occurrence: US)
  Receive Date: 20231214
  Receipt Date: 20231214
  Transmission Date: 20240110
  Serious: No
  Sender: FDA-Public Use
  Company Number: US-ALVOGEN-2023092289

PATIENT
  Age: 60 Year
  Sex: Female

DRUGS (2)
  1. FENTANYL [Suspect]
     Active Substance: FENTANYL\FENTANYL CITRATE
     Indication: Pain management
     Dosage: EXPIRATION DATE: JUL-2025 ?GTIN: 00347781424473 ?S/N: 056685168808?25 MCG
  2. FENTANYL [Suspect]
     Active Substance: FENTANYL\FENTANYL CITRATE
     Indication: Pain management
     Dosage: EXPIRATION DATE: JUL-2025 ?GTIN: 00347781424473?S/N: 061850862974 ?25 MCG

REACTIONS (2)
  - Intentional product use issue [Unknown]
  - Product availability issue [Unknown]
